FAERS Safety Report 11296831 (Version 1)
Quarter: 2015Q3

REPORT INFORMATION
  Report Type: Spontaneous
  Country: US (occurrence: US)
  Receive Date: 20150722
  Receipt Date: 20150722
  Transmission Date: 20151125
  Serious: No
  Sender: FDA-Public Use
  Company Number: US-ELI_LILLY_AND_COMPANY-US201009004009

PATIENT
  Sex: Female

DRUGS (3)
  1. EVISTA [Suspect]
     Active Substance: RALOXIFENE HYDROCHLORIDE
     Indication: PROPHYLAXIS
     Dosage: 60 MG, DAILY (1/D)
  2. VITAMIN A [Concomitant]
     Active Substance: VITAMIN A
  3. PRESERVISION LUTEIN EYE VITA.+MIN.SUP.SOFTG. [Concomitant]

REACTIONS (1)
  - Bone density decreased [Unknown]
